FAERS Safety Report 6257080-0 (Version None)
Quarter: 2009Q3

REPORT INFORMATION
  Report Type: 
  Country: None (occurrence: None)
  Receive Date: 20090706
  Receipt Date: 20090629
  Transmission Date: 20100115
  Serious: Yes (Death, Life-Threatening, Other)
  Sender: FDA-Public Use
  Company Number: B0571677A

PATIENT
  Sex: Female
  Weight: 47 kg

DRUGS (8)
  1. FLOLAN [Suspect]
     Indication: COLLAGEN DISORDER
     Route: 042
     Dates: start: 20081003, end: 20081009
  2. FLOLAN [Suspect]
     Route: 042
     Dates: start: 20081010, end: 20081023
  3. FLOLAN [Suspect]
     Route: 042
     Dates: start: 20081024, end: 20081106
  4. FLOLAN [Suspect]
     Route: 042
     Dates: start: 20081107, end: 20081120
  5. FLOLAN [Suspect]
     Route: 042
     Dates: start: 20081121, end: 20081204
  6. FLOLAN [Suspect]
     Route: 042
     Dates: start: 20081205, end: 20081205
  7. FLOLAN [Suspect]
     Route: 042
     Dates: start: 20081206, end: 20081201
  8. REVATIO [Concomitant]

REACTIONS (5)
  - CARDIAC FAILURE [None]
  - FATIGUE [None]
  - PANCYTOPENIA [None]
  - SYSTEMIC LUPUS ERYTHEMATOSUS [None]
  - VENTRICULAR TACHYCARDIA [None]
